FAERS Safety Report 9334002 (Version 2)
Quarter: 2013Q4

REPORT INFORMATION
  Report Type: Spontaneous
  Country: US (occurrence: US)
  Receive Date: 20130606
  Receipt Date: 20131008
  Transmission Date: 20140711
  Serious: No
  Sender: FDA-Public Use
  Company Number: US-AMGEN-USASP2013011796

PATIENT
  Age: 66 Year
  Sex: Female
  Weight: 80.18 kg

DRUGS (8)
  1. PROLIA [Suspect]
     Indication: OSTEOPOROSIS POSTMENOPAUSAL
     Dosage: 60 MG, Q6MO
     Route: 058
     Dates: start: 20130130
  2. TOPROL [Concomitant]
     Indication: BLOOD PRESSURE INCREASED
     Dosage: 50 MG, QD
     Route: 048
  3. MULTIVITAMIN                       /00097801/ [Concomitant]
  4. VITAMIN B12                        /00056201/ [Concomitant]
     Dosage: 1000 MG, QD
  5. VITAMIN D                          /00107901/ [Concomitant]
  6. CYTOMEL [Concomitant]
     Indication: HYPOTHYROIDISM
     Dosage: 5 MUG, QD
     Route: 048
  7. FISH OIL [Concomitant]
  8. THYROID PREPARATIONS [Concomitant]
     Indication: HYPOTHYROIDISM
     Dosage: 240 MG, QD
     Route: 048

REACTIONS (7)
  - Pain in jaw [Unknown]
  - Alopecia [Unknown]
  - Pain [Unknown]
  - Apathy [Unknown]
  - Mobility decreased [Unknown]
  - Fatigue [Not Recovered/Not Resolved]
  - Bone pain [Recovering/Resolving]
